FAERS Safety Report 24155046 (Version 3)
Quarter: 2024Q3

REPORT INFORMATION
  Report Type: Spontaneous
  Country: CA (occurrence: CA)
  Receive Date: 20240731
  Receipt Date: 20240926
  Transmission Date: 20241017
  Serious: Yes (Other)
  Sender: CELLTRION
  Company Number: CA-PFIZER INC-202400027601

PATIENT

DRUGS (12)
  1. INFLECTRA [Suspect]
     Active Substance: INFLIXIMAB-DYYB
     Indication: Psoriatic arthropathy
     Dosage: 400 MG, AT W 0, 2, 6 WEEKS THEN EVERY 8 WEEKS (WEEK 0)
     Route: 042
     Dates: start: 20240129, end: 20240129
  2. INFLECTRA [Suspect]
     Active Substance: INFLIXIMAB-DYYB
     Dosage: 400 MG AFTER 4 WEEKS (WEEK 2 INDUCTION)
     Route: 042
     Dates: start: 20240226
  3. INFLECTRA [Suspect]
     Active Substance: INFLIXIMAB-DYYB
     Dosage: 400 MG, AFTER 4 WEEKS
     Route: 042
     Dates: start: 20240325
  4. INFLECTRA [Suspect]
     Active Substance: INFLIXIMAB-DYYB
     Dosage: 470 MG, AFTER 17 WEEKS
     Route: 042
     Dates: start: 20240722
  5. INFLECTRA [Suspect]
     Active Substance: INFLIXIMAB-DYYB
     Dosage: 485 MG, EVERY 8 WEEKS
     Route: 042
     Dates: start: 20240916
  6. EDOXABAN TOSYLATE [Concomitant]
     Active Substance: EDOXABAN TOSYLATE
     Dosage: 1 DF
     Dates: start: 202406
  7. LOPRESSOR [Concomitant]
     Active Substance: METOPROLOL TARTRATE
     Dosage: 1 DF
  8. LYRICA [Concomitant]
     Active Substance: PREGABALIN
     Dosage: 1 DF
  9. METHOTREXATE [Concomitant]
     Active Substance: METHOTREXATE
     Dosage: 1 DF
     Route: 065
  10. METHOTREXATE [Concomitant]
     Active Substance: METHOTREXATE
     Dosage: 1 DF
     Route: 065
     Dates: start: 202403
  11. OXYCODONE [Concomitant]
     Active Substance: OXYCODONE
     Dosage: 1 DF
  12. OXYCODONE [Concomitant]
     Active Substance: OXYCODONE
     Dosage: 1 DF

REACTIONS (10)
  - Vomiting [Recovered/Resolved]
  - Nausea [Recovered/Resolved]
  - Atrial fibrillation [Unknown]
  - Drug ineffective [Not Recovered/Not Resolved]
  - Tachycardia [Not Recovered/Not Resolved]
  - Blood pressure diastolic increased [Not Recovered/Not Resolved]
  - Vomiting [Recovered/Resolved]
  - Gait disturbance [Unknown]
  - Off label use [Unknown]
  - Inappropriate schedule of product administration [Unknown]

NARRATIVE: CASE EVENT DATE: 20240101
